FAERS Safety Report 17652813 (Version 3)
Quarter: 2020Q2

REPORT INFORMATION
  Report Type: Report from Study
  Country: US (occurrence: US)
  Receive Date: 20200409
  Receipt Date: 20200506
  Transmission Date: 20200713
  Serious: Yes (Other)
  Sender: FDA-Public Use
  Company Number: US-GILEAD-2020-0457904

PATIENT
  Age: 37 Year
  Sex: Male

DRUGS (4)
  1. AMBRISENTAN [Suspect]
     Active Substance: AMBRISENTAN
     Indication: PRODUCT USED FOR UNKNOWN INDICATION
     Dosage: 10 MG, QD
     Route: 048
     Dates: start: 20190208
  2. SILDENAFIL. [Concomitant]
     Active Substance: SILDENAFIL
  3. TYVASO [Concomitant]
     Active Substance: TREPROSTINIL
     Indication: PRODUCT USED FOR UNKNOWN INDICATION
     Dosage: UNK
     Route: 065
  4. SODIUM CHLORIDE. [Concomitant]
     Active Substance: SODIUM CHLORIDE
     Dosage: UNK

REACTIONS (13)
  - Dizziness [Unknown]
  - Hypercoagulation [Unknown]
  - Red blood cell count increased [Unknown]
  - Fatigue [Unknown]
  - Tinnitus [Unknown]
  - Dyspnoea [Unknown]
  - Heart rate irregular [Unknown]
  - Muscle twitching [Unknown]
  - Blood pressure decreased [Unknown]
  - Cerebrovascular accident [Recovered/Resolved with Sequelae]
  - Monoplegia [Unknown]
  - Blindness transient [Unknown]
  - Cough [Unknown]

NARRATIVE: CASE EVENT DATE: 20200423
